FAERS Safety Report 9164143 (Version 1)
Quarter: 2013Q1

REPORT INFORMATION
  Report Type: Spontaneous
  Country: US (occurrence: US)
  Receive Date: 20130315
  Receipt Date: 20130315
  Transmission Date: 20140127
  Serious: No
  Sender: FDA-Public Use
  Company Number: US-009507513-1210USA010402

PATIENT
  Sex: Male

DRUGS (1)
  1. MIRALAX [Suspect]
     Indication: COLONOSCOPY
     Dosage: UNK, ONCE
     Route: 048
     Dates: start: 20121017

REACTIONS (4)
  - Hypoaesthesia [Unknown]
  - Overdose [Unknown]
  - Wrong technique in drug usage process [Unknown]
  - Off label use [Unknown]
